FAERS Safety Report 14424998 (Version 2)
Quarter: 2018Q1

REPORT INFORMATION
  Report Type: Report from Study
  Country: US (occurrence: US)
  Receive Date: 20180123
  Receipt Date: 20180215
  Transmission Date: 20180509
  Serious: Yes (Hospitalization, Other)
  Sender: FDA-Public Use
  Company Number: US-GILEAD-2017-0305964

PATIENT
  Age: 61 Year
  Sex: Male
  Weight: 74.83 kg

DRUGS (19)
  1. VANCOMYCIN [Suspect]
     Active Substance: VANCOMYCIN
     Indication: PRODUCT USED FOR UNKNOWN INDICATION
     Dosage: 1 G, Q12H
     Route: 065
  2. POTASSIUM CHLORIDE. [Concomitant]
     Active Substance: POTASSIUM CHLORIDE
  3. VELETRI [Suspect]
     Active Substance: EPOPROSTENOL
     Dosage: 34 NG, UNK
     Route: 042
  4. ADCIRCA [Concomitant]
     Active Substance: TADALAFIL
  5. CELLCEPT [Concomitant]
     Active Substance: MYCOPHENOLATE MOFETIL\MYCOPHENOLATE MOFETIL HYDROCHLORIDE
  6. AMBIEN [Concomitant]
     Active Substance: ZOLPIDEM TARTRATE
  7. VITAMIN D3 [Concomitant]
     Active Substance: CHOLECALCIFEROL
  8. FERROUS SULFATE. [Concomitant]
     Active Substance: FERROUS SULFATE
  9. ELIQUIS [Concomitant]
     Active Substance: APIXABAN
  10. CLARITIN [Concomitant]
     Active Substance: LORATADINE
  11. PRILOSEC [Concomitant]
     Active Substance: OMEPRAZOLE MAGNESIUM
  12. REMODULIN [Concomitant]
     Active Substance: TREPROSTINIL
  13. LASIX [Concomitant]
     Active Substance: FUROSEMIDE
  14. VELETRI [Suspect]
     Active Substance: EPOPROSTENOL
     Indication: PRODUCT USED FOR UNKNOWN INDICATION
     Dosage: 40 NG, UNK
     Route: 042
  15. AMBRISENTAN [Suspect]
     Active Substance: AMBRISENTAN
     Indication: PULMONARY HYPERTENSION
     Dosage: 5 MG, QD
     Route: 048
     Dates: start: 20171116
  16. PLO GEL MEDIFLO [Concomitant]
  17. CHOLECALCIFEROL [Concomitant]
     Active Substance: CHOLECALCIFEROL
  18. CALCIUM CARBONATE. [Concomitant]
     Active Substance: CALCIUM CARBONATE
  19. SPIRONOLACTONE. [Concomitant]
     Active Substance: SPIRONOLACTONE

REACTIONS (16)
  - Rash erythematous [Recovering/Resolving]
  - Dyspnoea exertional [Recovering/Resolving]
  - Bone pain [Unknown]
  - Myalgia [Recovering/Resolving]
  - Unevaluable event [Not Recovered/Not Resolved]
  - Dysgraphia [Unknown]
  - Breath sounds abnormal [Not Recovered/Not Resolved]
  - Diarrhoea [Not Recovered/Not Resolved]
  - Transplant evaluation [Unknown]
  - Body temperature abnormal [Not Recovered/Not Resolved]
  - Catheter site rash [Not Recovered/Not Resolved]
  - Oedema peripheral [Unknown]
  - Pain [Not Recovered/Not Resolved]
  - Catheter site inflammation [Not Recovered/Not Resolved]
  - Device related infection [Not Recovered/Not Resolved]
  - Unevaluable event [Unknown]

NARRATIVE: CASE EVENT DATE: 20180119
